FAERS Safety Report 7927969-2 (Version None)
Quarter: 2011Q4

REPORT INFORMATION
  Report Type: 
  Country: None (occurrence: None)
  Receive Date: 20111118
  Receipt Date: 20111107
  Transmission Date: 20120403
  Serious: Yes (Other)
  Sender: FDA-Public Use
  Company Number: US-BAYER-2011-048781

PATIENT
  Age: 15 Year
  Sex: Female
  Weight: 77.098 kg

DRUGS (14)
  1. ALBUTEROL [Concomitant]
     Dosage: 2 DF, PRN
  2. METOCLOPRAMIDE [Concomitant]
     Indication: GASTRIC DISORDER
     Dosage: 10 MG, TID
     Route: 048
     Dates: start: 20091008
  3. PROMETHAZINE [Concomitant]
  4. AMPICILLIN [Concomitant]
     Dosage: 500 MG, TID
  5. ZOFRAN [Concomitant]
     Indication: NAUSEA
     Dosage: 4 MG, QD
     Dates: start: 20090927
  6. YAZ [Suspect]
     Dosage: UNK
     Dates: start: 20060101, end: 20100101
  7. FOLIC ACID [Concomitant]
     Dosage: 1 MG, QD
  8. YASMIN [Suspect]
     Dosage: UNK
     Dates: start: 20060101, end: 20100101
  9. ASPIRIN [Concomitant]
     Dosage: 81 MG, QD
  10. GUAIFEN-C [Concomitant]
     Indication: COUGH
     Route: 048
  11. AZITHROMYCIN [Concomitant]
     Dosage: 250 MG, QD
     Route: 048
     Dates: start: 20091107
  12. ONDANSETRON HYDROCHLORIDE [Concomitant]
     Dosage: 4 MG, PRN
  13. PREDNISONE TAB [Concomitant]
     Dosage: 10 MG, UNK
  14. OMEPRAZOLE [Concomitant]
     Dosage: 80 MG, QD

REACTIONS (5)
  - CHOLECYSTITIS CHRONIC [None]
  - INJURY [None]
  - BILIARY DYSKINESIA [None]
  - GALLBLADDER DISORDER [None]
  - PAIN [None]
